FAERS Safety Report 4713699-7 (Version None)
Quarter: 2005Q3

REPORT INFORMATION
  Report Type: 
  Country: None (occurrence: None)
  Receive Date: 20050712
  Receipt Date: 20050628
  Transmission Date: 20060218
  Serious: Yes (Hospitalization)
  Sender: FDA-Public Use
  Company Number: US_0506119635

PATIENT
  Age: 72 Year
  Sex: Female
  Weight: 89 kg

DRUGS (15)
  1. CYMBALTA [Suspect]
     Dates: end: 20050525
  2. LEVOTHYROXINE [Concomitant]
  3. OMEPRAZOLE [Concomitant]
  4. LISINOPRIL (LISINOPIRL /00894001/) [Concomitant]
  5. CADUET [Concomitant]
  6. AMLODIPINE BESYLATE [Concomitant]
  7. ATORVASTATIN CALCIUM [Concomitant]
  8. FUROSEMIDE (FUROSEMIDE) [Concomitant]
  9. GLUCOTROL XL [Concomitant]
  10. AVANDIA [Concomitant]
  11. HYDROCODONE BITARTRATE [Concomitant]
  12. LEXAPRO [Concomitant]
  13. CLARATIN (LORATADINE) [Concomitant]
  14. CALCIUM W/VITAMIN D NOS [Concomitant]
  15. MULTIVITAMINS NOS (MULTIVITAMINS NOS) [Concomitant]

REACTIONS (5)
  - ABDOMINAL PAIN UPPER [None]
  - CONSTIPATION [None]
  - ERYTHEMA [None]
  - RECTAL HAEMORRHAGE [None]
  - THINKING ABNORMAL [None]
